FAERS Safety Report 17481819 (Version 1)
Quarter: 2020Q1

REPORT INFORMATION
  Report Type: Spontaneous
  Country: JP (occurrence: JP)
  Receive Date: 20200302
  Receipt Date: 20200302
  Transmission Date: 20200409
  Serious: Yes (Hospitalization, Other)
  Sender: FDA-Public Use
  Company Number: JP-STRIDES ARCOLAB LIMITED-2020SP002235

PATIENT
  Age: 27 Year
  Sex: Female

DRUGS (6)
  1. DAPTOMYCIN. [Suspect]
     Active Substance: DAPTOMYCIN
     Indication: STAPHYLOCOCCAL INFECTION
     Dosage: 10 MILLIGRAM/KILOGRAM EVERY 24 HOURS ON DAY 22-32
     Route: 065
  2. SULFAMETHOXAZOLE, TRIMETHOPRIM [Suspect]
     Active Substance: SULFAMETHOXAZOLE\TRIMETHOPRIM
     Indication: STAPHYLOCOCCAL INFECTION
     Dosage: 2 DOSAGE FORM, BID ON DAY 27-32
     Route: 065
  3. MINOCYCLINE [Suspect]
     Active Substance: MINOCYCLINE HYDROCHLORIDE
     Indication: STAPHYLOCOCCAL INFECTION
     Dosage: 100 MILLIGRAM, BID ON DAY 62-68
     Route: 065
  4. TEICOPLANIN [Suspect]
     Active Substance: TEICOPLANIN
     Indication: STAPHYLOCOCCAL INFECTION
     Dosage: UNK, ON DAY 42-54
     Route: 065
  5. VANCOMYCIN [Suspect]
     Active Substance: VANCOMYCIN
     Indication: STAPHYLOCOCCAL INFECTION
     Dosage: UNK, ON DAY 14-23 AND DAY 33-44
     Route: 065
  6. DOXYCYCLINE. [Suspect]
     Active Substance: DOXYCYCLINE
     Indication: STAPHYLOCOCCAL INFECTION
     Dosage: 100 MILLIGRAM, BID ON DAY 34-36 AND DAY 57-61
     Route: 065

REACTIONS (6)
  - Pain of skin [Recovered/Resolved]
  - Erythema [Recovered/Resolved]
  - Pyrexia [Unknown]
  - Pancytopenia [Unknown]
  - Nausea [Unknown]
  - Skin lesion [Recovered/Resolved]
